FAERS Safety Report 6763187-1 (Version None)
Quarter: 2010Q2

REPORT INFORMATION
  Report Type: 
  Country: None (occurrence: None)
  Receive Date: 20100609
  Receipt Date: 20100528
  Transmission Date: 20101027
  Serious: Yes (Other)
  Sender: FDA-Public Use
  Company Number: CA-GENENTECH-302571

PATIENT
  Sex: Female
  Weight: 65 kg

DRUGS (1)
  1. OMALIZUMAB [Suspect]
     Indication: ASTHMA
     Dosage: 375 MG, UNK
     Route: 058
     Dates: start: 20070413

REACTIONS (6)
  - BRONCHITIS [None]
  - COUGH [None]
  - INCREASED VISCOSITY OF BRONCHIAL SECRETION [None]
  - NASOPHARYNGITIS [None]
  - PNEUMONIA [None]
  - RHINITIS ALLERGIC [None]
